FAERS Safety Report 8496769-X (Version None)
Quarter: 2012Q3

REPORT INFORMATION
  Report Type: 
  Country: None (occurrence: None)
  Receive Date: 20120709
  Receipt Date: 20120702
  Transmission Date: 20120928
  Serious: Yes (Hospitalization)
  Sender: FDA-Public Use
  Company Number: FR-ROCHE-1083716

PATIENT
  Sex: Female

DRUGS (5)
  1. MABTHERA [Suspect]
     Indication: MANTLE CELL LYMPHOMA
  2. BORTEZOMIB [Suspect]
  3. DEXAMETHASONE SODIUM PHOSPHATE [Suspect]
     Indication: MANTLE CELL LYMPHOMA
     Route: 041
  4. BENDAMUSTINE HYDROCHLORIDE [Suspect]
     Indication: MANTLE CELL LYMPHOMA
     Route: 041
  5. BORTEZOMIB [Suspect]
     Indication: MANTLE CELL LYMPHOMA
     Route: 058

REACTIONS (2)
  - PYREXIA [None]
  - HYPOGLYCAEMIA [None]
